FAERS Safety Report 7405654-3 (Version None)
Quarter: 2011Q2

REPORT INFORMATION
  Report Type: 
  Country: None (occurrence: None)
  Receive Date: 20110406
  Receipt Date: 20110406
  Transmission Date: 20111010
  Serious: Yes (Other)
  Sender: FDA-Public Use
  Company Number: None

PATIENT
  Age: 89 Year
  Sex: Female
  Weight: 51.7 kg

DRUGS (1)
  1. PRADAXA [Suspect]
     Indication: THROMBOSIS PROPHYLAXIS
     Dosage: 75MG TWICE DAILY ORAL
     Route: 048
     Dates: start: 20110317, end: 20110321

REACTIONS (2)
  - CONTUSION [None]
  - PURPURA [None]
